FAERS Safety Report 7324866-0 (Version None)
Quarter: 2011Q1

REPORT INFORMATION
  Report Type: 
  Country: None (occurrence: None)
  Receive Date: 20110301
  Receipt Date: 20110216
  Transmission Date: 20110831
  Serious: Yes (Disabling)
  Sender: FDA-Public Use
  Company Number: FR-GENENTECH-314272

PATIENT
  Sex: Female

DRUGS (2)
  1. XOLAIR [Suspect]
     Indication: ASTHMA
     Dosage: 450 MG, Q15D
     Dates: start: 20101110
  2. XOLAIR [Suspect]
     Dosage: 300 MG, Q15D
     Dates: start: 20110104

REACTIONS (1)
  - MYALGIA [None]
